FAERS Safety Report 15575973 (Version 1)
Quarter: 2018Q4

REPORT INFORMATION
  Report Type: Spontaneous
  Country: FR (occurrence: FR)
  Receive Date: 20181101
  Receipt Date: 20181101
  Transmission Date: 20190205
  Serious: Yes (Other)
  Sender: FDA-Public Use
  Company Number: FR-TEVA-2018-FR-970763

PATIENT
  Age: 22 Year
  Sex: Female
  Weight: 90 kg

DRUGS (11)
  1. ROVAMYCINE [Suspect]
     Active Substance: SPIRAMYCIN
     Indication: PNEUMONIA
     Route: 042
     Dates: start: 20180919, end: 20180926
  2. LOVENOX [Suspect]
     Active Substance: ENOXAPARIN SODIUM
     Indication: THROMBOSIS PROPHYLAXIS
     Dosage: 4000 IU (INTERNATIONAL UNIT) DAILY;
     Route: 058
     Dates: start: 20180919, end: 20180928
  3. PANTOPRAZOLE [Suspect]
     Active Substance: PANTOPRAZOLE
     Indication: PRODUCT USED FOR UNKNOWN INDICATION
     Dosage: 40 MILLIGRAM DAILY;
     Route: 042
     Dates: start: 20180919, end: 20180925
  4. CEFOTAXIME [Suspect]
     Active Substance: CEFOTAXIME SODIUM
     Indication: PNEUMONIA
     Route: 042
     Dates: start: 20180919, end: 20180928
  5. ZYVOXID 2 MG/ML, SOLUTION POUR PERFUSION [Suspect]
     Active Substance: LINEZOLID
     Indication: PNEUMONIA
     Route: 042
     Dates: start: 20180919, end: 20180925
  6. CISATRACURIUM MYLAN [Suspect]
     Active Substance: CISATRACURIUM
     Indication: PRODUCT USED FOR UNKNOWN INDICATION
     Route: 041
     Dates: start: 20180919, end: 20180923
  7. MIDAZOLAM [Suspect]
     Active Substance: MIDAZOLAM HYDROCHLORIDE
     Indication: PRODUCT USED FOR UNKNOWN INDICATION
     Route: 041
     Dates: start: 20180919, end: 20180921
  8. BRICANYL [Concomitant]
     Active Substance: TERBUTALINE SULFATE
     Route: 065
  9. SUFENTANIL MYLAN [Suspect]
     Active Substance: SUFENTANIL
     Indication: ANALGESIC THERAPY
     Route: 041
     Dates: start: 20180919, end: 20180923
  10. UMULINE [Suspect]
     Active Substance: INSULIN HUMAN
     Indication: PRODUCT USED FOR UNKNOWN INDICATION
     Route: 041
     Dates: start: 20180919, end: 20180921
  11. NORADRENALINE [Suspect]
     Active Substance: NOREPINEPHRINE
     Indication: PRODUCT USED FOR UNKNOWN INDICATION
     Route: 041
     Dates: start: 20180919, end: 20180922

REACTIONS (2)
  - Rash morbilliform [Recovering/Resolving]
  - Eosinophilia [Recovering/Resolving]

NARRATIVE: CASE EVENT DATE: 20180920
